FAERS Safety Report 7518252-8 (Version None)
Quarter: 2011Q2

REPORT INFORMATION
  Report Type: 
  Country: None (occurrence: None)
  Receive Date: 20110601
  Receipt Date: 20110601
  Transmission Date: 20111010
  Serious: No
  Sender: FDA-Public Use
  Company Number: None

PATIENT
  Sex: Female
  Weight: 54.4316 kg

DRUGS (1)
  1. SAVELLA [Suspect]
     Indication: FIBROMYALGIA
     Dosage: 50 MG. 1 TAB BID PO
     Route: 048
     Dates: start: 20110327, end: 20110508

REACTIONS (12)
  - SUICIDAL IDEATION [None]
  - DRUG INEFFECTIVE [None]
  - HYPERHIDROSIS [None]
  - PAIN [None]
  - DEPRESSION [None]
  - HEADACHE [None]
  - URTICARIA [None]
  - NAUSEA [None]
  - RASH [None]
  - HOT FLUSH [None]
  - NERVOUSNESS [None]
  - ANXIETY [None]
